FAERS Safety Report 7442221-X (Version None)
Quarter: 2011Q2

REPORT INFORMATION
  Report Type: 
  Country: None (occurrence: None)
  Receive Date: 20110425
  Receipt Date: 20110425
  Transmission Date: 20111010
  Serious: Yes (Hospitalization)
  Sender: FDA-Public Use
  Company Number: None

PATIENT
  Sex: Male
  Weight: 93.441 kg

DRUGS (1)
  1. PAMIDRONATE DISODIUM [Suspect]
     Indication: HYPOCALCAEMIA
     Dosage: PAMIDRONATE 90 MG ONCE ONLY ON 1/25/01 IV
     Route: 042

REACTIONS (2)
  - HYPOCALCAEMIA [None]
  - VITAMIN D DECREASED [None]
